FAERS Safety Report 11512450 (Version 6)
Quarter: 2016Q3

REPORT INFORMATION
  Report Type: Report from Study
  Country: BR (occurrence: BR)
  Receive Date: 20150916
  Receipt Date: 20160826
  Transmission Date: 20161109
  Serious: Yes (Life-Threatening, Hospitalization, Other)
  Sender: FDA-Public Use
  Company Number: PHHY2015BR111261

PATIENT
  Sex: Male
  Weight: 86 kg

DRUGS (2)
  1. EXJADE [Suspect]
     Active Substance: DEFERASIROX
     Dosage: 2 DF (15 MG/KG), QD
     Route: 048
  2. EXJADE [Suspect]
     Active Substance: DEFERASIROX
     Indication: HEREDITARY HAEMOLYTIC ANAEMIA
     Dosage: 7 DF (50 MG/KG), QD
     Route: 048

REACTIONS (23)
  - Pollakiuria [Recovered/Resolved]
  - Syncope [Recovered/Resolved]
  - Fatigue [Unknown]
  - Yellow skin [Unknown]
  - Myopia [Unknown]
  - Hypertension [Recovering/Resolving]
  - Weight increased [Unknown]
  - Anxiety [Recovering/Resolving]
  - Poor quality sleep [Unknown]
  - Dizziness [Unknown]
  - Pancreatic disorder [Unknown]
  - Weight loss poor [Unknown]
  - Diabetes mellitus [Recovered/Resolved]
  - Congestive cardiomyopathy [Recovering/Resolving]
  - Liver disorder [Unknown]
  - Cardiomyopathy [Unknown]
  - Tooth loss [Not Recovered/Not Resolved]
  - Depression [Recovering/Resolving]
  - Dyspnoea [Unknown]
  - Weight decreased [Recovered/Resolved]
  - Blindness [Unknown]
  - Memory impairment [Unknown]
  - Muscular weakness [Unknown]

NARRATIVE: CASE EVENT DATE: 2015
